FAERS Safety Report 4514198-8 (Version None)
Quarter: 2004Q4

REPORT INFORMATION
  Report Type: 
  Country: None (occurrence: None)
  Receive Date: 20041124
  Receipt Date: 20041110
  Transmission Date: 20050328
  Serious: Yes (Hospitalization)
  Sender: FDA-Public Use
  Company Number: 2004AP05724

PATIENT
  Sex: Male
  Weight: 55 kg

DRUGS (3)
  1. LOSEC [Suspect]
     Dates: start: 20040822, end: 20040829
  2. AMOXICILLIN [Suspect]
     Dates: start: 20040822, end: 20040829
  3. CLARITHROMYCIN [Suspect]
     Dates: start: 20040822, end: 20040829

REACTIONS (2)
  - BREAST MASS [None]
  - GYNAECOMASTIA [None]
